FAERS Safety Report 4411139-9 (Version None)
Quarter: 2004Q2

REPORT INFORMATION
  Report Type: 
  Country: None (occurrence: None)
  Receive Date: 20040630
  Receipt Date: 20040301
  Transmission Date: 20050107
  Serious: No
  Sender: FDA-Public Use
  Company Number: 03P-163-0236960-00

PATIENT
  Age: 56 Year
  Sex: Female
  Weight: 104.3273 kg

DRUGS (9)
  1. HUMIRA [Suspect]
     Indication: POLYMYALGIA RHEUMATICA
     Dosage: 40 MG, 1 IN 2 WK, SUBCUTANEOUS
     Route: 058
     Dates: start: 20030807
  2. HUMIRA [Suspect]
     Indication: POLYMYALGIA RHEUMATICA
     Dosage: 40 MG, 1 IN 2 WK, SUBCUTANEOUS
     Route: 058
     Dates: start: 20031201
  3. PREDNISONE TAB [Concomitant]
  4. LANSOPRAZOLE [Concomitant]
  5. DIOVAN [Concomitant]
  6. GLIPIZIDE [Concomitant]
  7. CALCIUNM CARBONATE [Concomitant]
  8. LEFLUNOMIDE [Concomitant]
  9. WATER PILL [Concomitant]

REACTIONS (8)
  - CHILLS [None]
  - NIGHT SWEATS [None]
  - OEDEMA PERIPHERAL [None]
  - PAIN IN EXTREMITY [None]
  - PARAESTHESIA [None]
  - SALIVARY GLAND ENLARGEMENT [None]
  - SALIVARY GLAND PAIN [None]
  - VISION BLURRED [None]
